FAERS Safety Report 7467372-5 (Version None)
Quarter: 2011Q2

REPORT INFORMATION
  Report Type: 
  Country: None (occurrence: None)
  Receive Date: 20110428
  Receipt Date: 20110322
  Transmission Date: 20111010
  Serious: Yes (Disabling, Other)
  Sender: FDA-Public Use
  Company Number: 029777

PATIENT
  Sex: Female
  Weight: 61.2 kg

DRUGS (4)
  1. CIMZIA [Suspect]
     Indication: RHEUMATOID ARTHRITIS
     Dosage: (200 MG 1X/WEEK, ONCE A WEEK SUBCUTANEOUS), (200 MG 1X/WEEK, ONCE A WEEK SUBCUTANEOUS)
     Route: 058
     Dates: start: 20110101, end: 20110201
  2. CIMZIA [Suspect]
     Indication: RHEUMATOID ARTHRITIS
     Dosage: (200 MG 1X/WEEK, ONCE A WEEK SUBCUTANEOUS), (200 MG 1X/WEEK, ONCE A WEEK SUBCUTANEOUS)
     Route: 058
     Dates: start: 20110301
  3. XANAX [Concomitant]
  4. PLAQUENIL [Suspect]

REACTIONS (5)
  - FUNGAL INFECTION [None]
  - CANDIDIASIS [None]
  - URINE ANALYSIS ABNORMAL [None]
  - VISUAL ACUITY REDUCED [None]
  - BRONCHITIS [None]
